FAERS Safety Report 4931261-8 (Version None)
Quarter: 2006Q1

REPORT INFORMATION
  Report Type: 
  Country: None (occurrence: None)
  Receive Date: 20060227
  Receipt Date: 20060220
  Transmission Date: 20060701
  Serious: Yes (Hospitalization)
  Sender: FDA-Public Use
  Company Number: 2006-138186-NL

PATIENT
  Age: 65 Year
  Sex: Female

DRUGS (4)
  1. MIRTAZAPINE [Suspect]
     Indication: DEPRESSION
     Dosage: 30 MG
     Dates: start: 20060203, end: 20060206
  2. MIRTAZAPINE [Suspect]
     Indication: INSOMNIA
     Dosage: 30 MG
     Dates: start: 20060203, end: 20060206
  3. ESCITALOPRAM OXALATE [Concomitant]
  4. TRAZODONE [Concomitant]

REACTIONS (2)
  - ELECTROCARDIOGRAM ST SEGMENT DEPRESSION [None]
  - HYPERTENSION [None]
